FAERS Safety Report 14868606 (Version 1)
Quarter: 2018Q2

REPORT INFORMATION
  Report Type: Spontaneous
  Country: FR (occurrence: FR)
  Receive Date: 20180509
  Receipt Date: 20180509
  Transmission Date: 20180711
  Serious: Yes (Other)
  Sender: FDA-Public Use
  Company Number: FR-MERCK KGAA-2047442

PATIENT
  Age: 41 Year
  Sex: Female
  Weight: 63 kg

DRUGS (2)
  1. NOVOTHYROX [Suspect]
     Active Substance: LEVOTHYROXINE SODIUM
     Indication: POST PROCEDURAL HYPOTHYROIDISM
     Route: 048
     Dates: start: 20170705, end: 20170710
  2. NOVOTHYROX [Suspect]
     Active Substance: LEVOTHYROXINE SODIUM
     Route: 048
     Dates: start: 20170710, end: 2017

REACTIONS (37)
  - Pain in extremity [None]
  - Impaired driving ability [None]
  - Burning sensation [None]
  - Vestibular disorder [None]
  - Nausea [None]
  - Urticaria [None]
  - Decreased interest [None]
  - Irritability [None]
  - Suicidal ideation [None]
  - Impaired self-care [None]
  - Nervousness [None]
  - Amnesia [None]
  - Oedema [None]
  - Weight decreased [None]
  - Rash [None]
  - Musculoskeletal pain [None]
  - Dizziness [None]
  - Migraine [None]
  - Malaise [None]
  - Fatigue [None]
  - Headache [None]
  - Gastrointestinal motility disorder [None]
  - Acne [None]
  - Social avoidant behaviour [None]
  - Weight increased [None]
  - Depression [None]
  - Muscle spasms [None]
  - Insomnia [None]
  - Chest discomfort [None]
  - Alopecia [None]
  - Loss of personal independence in daily activities [None]
  - Vertigo [None]
  - Dyspepsia [None]
  - Blood thyroid stimulating hormone increased [None]
  - Mental impairment [None]
  - Drug tolerance decreased [None]
  - Blood thyroid stimulating hormone decreased [None]

NARRATIVE: CASE EVENT DATE: 20170710
